FAERS Safety Report 12691872 (Version 1)
Quarter: 2016Q3

REPORT INFORMATION
  Report Type: Spontaneous
  Country: US (occurrence: US)
  Receive Date: 20160827
  Receipt Date: 20160827
  Transmission Date: 20161109
  Serious: No
  Sender: FDA-Public Use
  Company Number: US-ASTRAZENECA-2016SE65331

PATIENT
  Sex: Female
  Weight: 97.5 kg

DRUGS (12)
  1. ADRENAL HEALTH [Concomitant]
     Indication: ADRENAL DISORDER
     Dosage: DAILY
     Route: 048
  2. MULTI-VITAMIN [Concomitant]
     Active Substance: .ALPHA.-TOCOPHEROL ACETATE, DL-\ASCORBIC ACID\CYANOCOBALAMIN\FLUORIDE ION\FOLIC ACID\NIACIN\PYRIDOXINE\RIBOFLAVIN\THIAMINE\VITAMIN A\VITAMIN D
     Indication: GENERAL PHYSICAL HEALTH DETERIORATION
     Dosage: DAILY
     Route: 048
     Dates: start: 2000
  3. FLUOXAPENE [Concomitant]
     Indication: DEPRESSION
     Dosage: ALTERNATING DAILY DOSES OF 10 OR 20 MG PER DAY.
     Route: 048
     Dates: start: 1998
  4. MEGA RED [Concomitant]
     Dosage: DAILY
     Route: 048
     Dates: start: 201604
  5. VITAMIN D3 [Concomitant]
     Active Substance: CHOLECALCIFEROL
     Route: 048
     Dates: start: 2014
  6. BYDUREON [Suspect]
     Active Substance: EXENATIDE
     Indication: DIABETES MELLITUS
     Route: 058
     Dates: start: 20150811
  7. LEVOTHYROXINE. [Concomitant]
     Active Substance: LEVOTHYROXINE
     Indication: THYROID DISORDER
     Route: 048
     Dates: start: 2006
  8. DAPTOMYCIN. [Concomitant]
     Active Substance: DAPTOMYCIN
     Indication: BACTERIAL INFECTION
     Dosage: DAILY
     Route: 042
     Dates: start: 20160528
  9. AMOXICILLIN. [Concomitant]
     Active Substance: AMOXICILLIN
     Indication: BACTERIAL INFECTION
     Route: 048
     Dates: start: 20160528
  10. OXYCODONE [Concomitant]
     Active Substance: OXYCODONE
     Indication: PAIN
     Dosage: AS NEEDED
  11. MAX 1 [Concomitant]
     Indication: ILL-DEFINED DISORDER
     Dosage: DAILY
     Route: 048
     Dates: start: 2005
  12. DEXOFENEDINE [Concomitant]
     Indication: MULTIPLE ALLERGIES
     Dosage: DAILY
     Route: 048
     Dates: start: 1996

REACTIONS (4)
  - Weight decreased [Unknown]
  - Contusion [Unknown]
  - Injection site mass [Unknown]
  - Fatigue [Unknown]
